FAERS Safety Report 10266456 (Version 2)
Quarter: 2014Q2

REPORT INFORMATION
  Report Type: Other
  Country: US (occurrence: US)
  Receive Date: 20140628
  Receipt Date: 20140628
  Transmission Date: 20141212
  Serious: Yes (Hospitalization, Other)
  Sender: FDA-Public Use
  Company Number: US-GSKPPD-2014GSK000302

PATIENT
  Age: 72 Year
  Sex: Male

DRUGS (3)
  1. AVANDIA [Suspect]
     Indication: DIABETES MELLITUS
     Route: 048
     Dates: start: 20010913, end: 20030319
  2. AVANDAMET [Suspect]
     Indication: DIABETES MELLITUS
     Dosage: 2/500MG
     Route: 048
     Dates: start: 20030820, end: 20040321
  3. DIOVAN [Concomitant]

REACTIONS (1)
  - Coronary artery disease [Recovered/Resolved]
